FAERS Safety Report 23616841 (Version 1)
Quarter: 2024Q1

REPORT INFORMATION
  Report Type: Spontaneous
  Country: US (occurrence: US)
  Receive Date: 20240311
  Receipt Date: 20240311
  Transmission Date: 20240409
  Serious: Yes (Hospitalization)
  Sender: FDA-Public Use
  Company Number: US-AMGEN-USASP2024046968

PATIENT

DRUGS (2)
  1. ROMIPLOSTIM [Suspect]
     Active Substance: ROMIPLOSTIM
     Indication: Immune thrombocytopenia
     Dosage: LESS THAN 5 MCG/KG (LOW DOSE, LD)
     Route: 065
  2. ROMIPLOSTIM [Suspect]
     Active Substance: ROMIPLOSTIM
     Dosage: MORE THAN OR EQUAL TO 5 MCG/KG (HIGH DOSE, HD)
     Route: 065

REACTIONS (6)
  - Cerebral infarction [Unknown]
  - Splenic vein thrombosis [Unknown]
  - Atrial thrombosis [Unknown]
  - Deep vein thrombosis [Unknown]
  - Pulmonary embolism [Unknown]
  - Portal vein thrombosis [Unknown]
